FAERS Safety Report 12087950 (Version 1)
Quarter: 2016Q1

REPORT INFORMATION
  Report Type: Spontaneous
  Country: US (occurrence: US)
  Receive Date: 20160217
  Receipt Date: 20160217
  Transmission Date: 20160526
  Serious: No
  Sender: FDA-Public Use
  Company Number: US-ALLERGAN-1512795US

PATIENT
  Sex: Female
  Weight: 62.59 kg

DRUGS (2)
  1. SYNTHROID [Concomitant]
     Active Substance: LEVOTHYROXINE SODIUM
     Indication: THYROID DISORDER
  2. RESTASIS [Suspect]
     Active Substance: CYCLOSPORINE
     Indication: DRY EYE
     Dosage: 1 GTT OU TWICE A DAY
     Route: 047

REACTIONS (6)
  - Paranasal sinus hypersecretion [Not Recovered/Not Resolved]
  - Eye irritation [Not Recovered/Not Resolved]
  - Punctal plug insertion [Not Recovered/Not Resolved]
  - Hypersensitivity [Not Recovered/Not Resolved]
  - Inappropriate schedule of drug administration [Unknown]
  - Dry eye [Unknown]
